FAERS Safety Report 6553359-3 (Version None)
Quarter: 2010Q1

REPORT INFORMATION
  Report Type: 
  Country: None (occurrence: None)
  Receive Date: 20100127
  Receipt Date: 20090727
  Transmission Date: 20100710
  Serious: No
  Sender: FDA-Public Use
  Company Number: A0798813A

PATIENT
  Age: 29 Year
  Sex: Male

DRUGS (4)
  1. IMITREX [Suspect]
     Indication: MIGRAINE
     Dosage: 6MG AS REQUIRED
     Route: 048
     Dates: start: 19930101
  2. PROZAC [Concomitant]
  3. SOMA [Concomitant]
  4. HYDROCODONE [Concomitant]

REACTIONS (1)
  - DRUG INEFFECTIVE [None]
